FAERS Safety Report 9494659 (Version 2)
Quarter: 2013Q3

REPORT INFORMATION
  Report Type: Spontaneous
  Country: JP (occurrence: JP)
  Receive Date: 20130903
  Receipt Date: 20130903
  Transmission Date: 20140515
  Serious: Yes (Other)
  Sender: FDA-Public Use
  Company Number: JP-PFIZER INC-2013244473

PATIENT
  Age: 21 Year
  Sex: Female

DRUGS (2)
  1. JZOLOFT [Suspect]
     Dosage: 50 MG/ DAY
     Route: 048
  2. JZOLOFT [Suspect]
     Dosage: 1200 MG, SINGLE
     Route: 048

REACTIONS (2)
  - Overdose [Unknown]
  - Suicide attempt [Unknown]
